FAERS Safety Report 5988440-0 (Version None)
Quarter: 2008Q4

REPORT INFORMATION
  Report Type: 
  Country: None (occurrence: None)
  Receive Date: 20081204
  Receipt Date: 20081126
  Transmission Date: 20090506
  Serious: Yes (Hospitalization)
  Sender: FDA-Public Use
  Company Number: DSA_32765_2008

PATIENT
  Sex: Female

DRUGS (4)
  1. LORAZEPAM [Suspect]
     Dosage: 10 MG 1X, NOT THE PRESCRIBED AMOUNT ORAL
     Route: 048
     Dates: start: 20081125, end: 20081125
  2. CLINDAMYCIN HCL [Suspect]
     Dosage: 420 MG 1X. NOT THE PRESCRIBED AMOUNT. ORAL
     Route: 048
     Dates: start: 20081125, end: 20081125
  3. SINGULAIR [Suspect]
     Dosage: 100 MG 1X, NOT THE PRESCRIBED AMOUNT ORAL
     Route: 048
     Dates: start: 20081125, end: 20081125
  4. ZINKOROTAT (ZONKOROTAT-ZINC OROTATE) (NOT SPECIFIED) [Suspect]
     Dosage: 400 MG 1X, NOT THE PRESCRIBED AMOUNT ORAL)
     Route: 048

REACTIONS (5)
  - ABDOMINAL PAIN [None]
  - FATIGUE [None]
  - HALLUCINATION [None]
  - MULTIPLE DRUG OVERDOSE INTENTIONAL [None]
  - SUICIDE ATTEMPT [None]
